FAERS Safety Report 9933204 (Version 6)
Quarter: 2015Q3

REPORT INFORMATION
  Report Type: Report from Study
  Country: DE (occurrence: DE)
  Receive Date: 20140228
  Receipt Date: 20150707
  Transmission Date: 20151125
  Serious: Yes (Other)
  Sender: FDA-Public Use
  Company Number: DE-INCYTE CORPORATION-2014IN000471

PATIENT
  Sex: Female

DRUGS (22)
  1. INCB018424 [Suspect]
     Active Substance: RUXOLITINIB
     Dosage: 20 MG, QD (10 MG, (2 DF PER DAY))
     Route: 048
     Dates: start: 20150415
  2. HYDREA [Concomitant]
     Active Substance: HYDROXYUREA
     Indication: MYELOFIBROSIS
     Dosage: 1000 MG, QD
     Route: 065
     Dates: start: 20140502
  3. INCB018424 [Suspect]
     Active Substance: RUXOLITINIB
     Dosage: 40 MG, QD (20 MG (2 DF PER DAY))
     Route: 048
     Dates: start: 20140609, end: 20150317
  4. ASPIRIN. [Concomitant]
     Active Substance: ASPIRIN
     Indication: PRODUCT USED FOR UNKNOWN INDICATION
     Dosage: 100 MG, QD
     Route: 065
     Dates: start: 20140401
  5. HYDREA [Concomitant]
     Active Substance: HYDROXYUREA
     Indication: WHITE BLOOD CELL COUNT INCREASED
     Dosage: 500 MG
     Route: 065
     Dates: start: 20140822
  6. NOVALGIN [Concomitant]
     Active Substance: METAMIZOLE SODIUM
     Indication: ARTHRALGIA
     Route: 065
     Dates: start: 20140512
  7. PANTOZOL [Concomitant]
     Active Substance: PANTOPRAZOLE SODIUM
     Indication: ULCER
     Dosage: 40 MG, QD
     Route: 065
     Dates: start: 20140430
  8. INCB018424 [Suspect]
     Active Substance: RUXOLITINIB
     Dosage: 40 MG, QD
     Route: 048
     Dates: start: 20131127, end: 20140324
  9. CLARITHROMYCIN. [Concomitant]
     Active Substance: CLARITHROMYCIN
     Indication: BRONCHITIS
     Dosage: 500 MG, QD
     Route: 065
     Dates: start: 20131105, end: 20131115
  10. INCB018424 [Suspect]
     Active Substance: RUXOLITINIB
     Dosage: 10 MG, QD (5 MG(2 DF PER DAY))
     Route: 048
     Dates: start: 20140430, end: 20140501
  11. INCB018424 [Suspect]
     Active Substance: RUXOLITINIB
     Dosage: 30 MG, QD (15 MG, (2 DF PER DAY))
     Route: 048
     Dates: start: 20150318, end: 20150414
  12. OLYNTH [Concomitant]
     Active Substance: XYLOMETAZOLINE HYDROCHLORIDE
     Indication: UPPER RESPIRATORY TRACT INFECTION
     Dosage: 0.1 %
     Route: 065
     Dates: start: 20140722
  13. SINUPRET [Concomitant]
     Active Substance: HERBALS
     Indication: UPPER RESPIRATORY TRACT INFECTION
     Dosage: UNK UKN, TID
     Route: 065
     Dates: start: 20140902
  14. INCB018424 [Suspect]
     Active Substance: RUXOLITINIB
     Indication: MYELOFIBROSIS
     Dosage: 30 MG, QD
     Route: 048
     Dates: start: 20131021
  15. INCB018424 [Suspect]
     Active Substance: RUXOLITINIB
     Dosage: 30 MG, QD (15 MG(2 DF PER DAY))
     Route: 048
     Dates: start: 20140425, end: 20140427
  16. DICLOFENAC [Concomitant]
     Active Substance: DICLOFENAC
     Indication: ARTHRALGIA
     Dosage: UNK
     Route: 065
     Dates: start: 20131218
  17. INCB018424 [Suspect]
     Active Substance: RUXOLITINIB
     Dosage: 50 MG, QD (5 MG, QD (2 DF) PLUS 20 MG (2 DF)
     Route: 048
     Dates: start: 20140325, end: 20140421
  18. INCB018424 [Suspect]
     Active Substance: RUXOLITINIB
     Dosage: 20 MG, QD (5 MG (4 DF PER DAY))
     Route: 048
     Dates: start: 20140428, end: 20140429
  19. IBUPROFEN. [Concomitant]
     Active Substance: IBUPROFEN
     Indication: ARTHRALGIA
     Dosage: 600 MG, PER DAY
     Dates: start: 20140108, end: 20140203
  20. IBUPROFEN. [Concomitant]
     Active Substance: IBUPROFEN
     Dosage: 1200 MG, QD
     Route: 065
     Dates: start: 20140108, end: 20140203
  21. CEFUROXIME. [Concomitant]
     Active Substance: CEFUROXIME
     Indication: UPPER RESPIRATORY TRACT INFECTION
     Dosage: 1500 MG, QD
     Route: 065
     Dates: start: 20140723, end: 20140728
  22. INCB018424 [Suspect]
     Active Substance: RUXOLITINIB
     Dosage: 40 MG, QD (20 MG (2 DF PER DAY)
     Route: 048
     Dates: start: 20140422, end: 20140424

REACTIONS (1)
  - Monocyte count increased [Recovered/Resolved]

NARRATIVE: CASE EVENT DATE: 20140204
